FAERS Safety Report 17447075 (Version 1)
Quarter: 2020Q1

REPORT INFORMATION
  Report Type: Spontaneous
  Country: ES (occurrence: ES)
  Receive Date: 20200221
  Receipt Date: 20200221
  Transmission Date: 20200409
  Serious: Yes (Death, Life-Threatening, Hospitalization, Other)
  Sender: FDA-Public Use
  Company Number: ES-AMGEN-ESPSP2020025506

PATIENT

DRUGS (6)
  1. PREDNISOLONE. [Concomitant]
     Active Substance: PREDNISOLONE
     Indication: DIFFUSE LARGE B-CELL LYMPHOMA
     Dosage: 100 MILLIGRAM, QD (FOR 5 DAYS)
  2. RITUXIMAB. [Concomitant]
     Active Substance: RITUXIMAB
     Indication: DIFFUSE LARGE B-CELL LYMPHOMA
     Dosage: 375 MILLIGRAM/SQ. METER, Q2WK
  3. CYCLOPHOSPHAMIDE. [Concomitant]
     Active Substance: CYCLOPHOSPHAMIDE
     Indication: DIFFUSE LARGE B-CELL LYMPHOMA
     Dosage: 750 MILLIGRAM/SQ. METER, Q2WK
  4. FILGRASTIM [Suspect]
     Active Substance: FILGRASTIM
     Indication: PROPHYLAXIS
     Dosage: 5 MICROGRAM/KILOGRAM (FROM DAYS 4 TO 10)
     Route: 058
  5. DOXORUBICIN [Concomitant]
     Active Substance: DOXORUBICIN
     Indication: DIFFUSE LARGE B-CELL LYMPHOMA
     Dosage: 50 MILLIGRAM/SQ. METER, Q2WK
  6. VINCRISTINE [Concomitant]
     Active Substance: VINCRISTINE
     Indication: DIFFUSE LARGE B-CELL LYMPHOMA
     Dosage: 1.4 MILLIGRAM/SQ. METER, Q2WK

REACTIONS (18)
  - Hepatotoxicity [Fatal]
  - Neurotoxicity [Fatal]
  - Pulmonary embolism [Unknown]
  - Gastric perforation [Unknown]
  - Septic shock [Fatal]
  - Vomiting [Unknown]
  - Mucosal inflammation [Unknown]
  - Death [Fatal]
  - Nephropathy toxic [Fatal]
  - Thrombocytopenia [Unknown]
  - Therapy partial responder [Unknown]
  - Neutropenia [Unknown]
  - Infection [Unknown]
  - B-cell lymphoma recurrent [Unknown]
  - Disease progression [Fatal]
  - Pneumonia [Unknown]
  - Anaemia [Unknown]
  - Febrile neutropenia [Unknown]
